FAERS Safety Report 23105314 (Version 1)
Quarter: 2023Q4

REPORT INFORMATION
  Report Type: Report from Study
  Country: KE (occurrence: KE)
  Receive Date: 20231025
  Receipt Date: 20231025
  Transmission Date: 20240110
  Serious: Yes (Other)
  Sender: FDA-Public Use
  Company Number: KE-JNJFOC-20231055740

PATIENT
  Age: 32 Year
  Sex: Female
  Weight: 101 kg

DRUGS (1)
  1. REMICADE [Suspect]
     Active Substance: INFLIXIMAB
     Indication: Product used for unknown indication
     Route: 041
     Dates: start: 202305

REACTIONS (1)
  - Latent tuberculosis [Unknown]

NARRATIVE: CASE EVENT DATE: 20230101
